FAERS Safety Report 20006138 (Version 1)
Quarter: 2021Q4

REPORT INFORMATION
  Report Type: Report from Study
  Country: CA (occurrence: CA)
  Receive Date: 20211027
  Receipt Date: 20211027
  Transmission Date: 20220304
  Serious: Yes (Life-Threatening, Hospitalization)
  Sender: FDA-Public Use
  Company Number: CA-BEH-2021137220

PATIENT
  Age: 71 Year
  Sex: Male
  Weight: 103.9 kg

DRUGS (19)
  1. BERINERT [Suspect]
     Active Substance: HUMAN C1-ESTERASE INHIBITOR
     Indication: Hereditary angioedema
     Dosage: 3000 INTERNATIONAL UNIT, QOD
     Route: 042
     Dates: start: 20140429
  2. BERINERT [Suspect]
     Active Substance: HUMAN C1-ESTERASE INHIBITOR
     Indication: Hereditary angioedema
     Dosage: 3000 INTERNATIONAL UNIT, QOD
     Route: 042
     Dates: start: 20140429
  3. BERINERT [Suspect]
     Active Substance: HUMAN C1-ESTERASE INHIBITOR
     Indication: Prophylaxis
     Dosage: 2000 INTERNATIONAL UNIT, PRN FOR ATTACK
     Route: 042
     Dates: start: 20140429
  4. BERINERT [Suspect]
     Active Substance: HUMAN C1-ESTERASE INHIBITOR
     Indication: Prophylaxis
     Dosage: 2000 INTERNATIONAL UNIT, PRN FOR ATTACK
     Route: 042
     Dates: start: 20140429
  5. HYDROCHLOROTHIAZIDE [Concomitant]
     Active Substance: HYDROCHLOROTHIAZIDE
  6. LIPITOR [Concomitant]
     Active Substance: ATORVASTATIN CALCIUM
  7. DOXAZOSIN [Concomitant]
     Active Substance: DOXAZOSIN MESYLATE
  8. ASPIRIN [Concomitant]
     Active Substance: ASPIRIN
  9. FIRMAGON [Concomitant]
     Active Substance: DEGARELIX ACETATE
  10. LANADELUMAB [Concomitant]
     Active Substance: LANADELUMAB
  11. NYSTATIN [Concomitant]
     Active Substance: NYSTATIN
  12. BENZYDAMINE [Concomitant]
     Active Substance: BENZYDAMINE
  13. PREDNISONE [Concomitant]
     Active Substance: PREDNISONE
  14. UNSPECIFIED INGREDIENT [Concomitant]
     Active Substance: UNSPECIFIED INGREDIENT
  15. INSULIN NOS [Concomitant]
     Active Substance: INSULIN NOS
  16. GLICLAZIDE [Concomitant]
     Active Substance: GLICLAZIDE
  17. HYDROMORPHONE [Concomitant]
     Active Substance: HYDROMORPHONE
  18. DEXAMETHASONE [Concomitant]
     Active Substance: DEXAMETHASONE
  19. MAGNESIUM [Concomitant]
     Active Substance: MAGNESIUM

REACTIONS (10)
  - Prostate cancer [Fatal]
  - Terminal state [Fatal]
  - Lumbar vertebral fracture [Not Recovered/Not Resolved]
  - Pulmonary embolism [Not Recovered/Not Resolved]
  - Therapy interrupted [Fatal]
  - Therapy interrupted [Not Recovered/Not Resolved]
  - Therapy interrupted [Not Recovered/Not Resolved]
  - Therapy interrupted [Fatal]
  - No adverse event [Unknown]
  - Off label use [Unknown]

NARRATIVE: CASE EVENT DATE: 20211017
